FAERS Safety Report 23555071 (Version 1)
Quarter: 2024Q1

REPORT INFORMATION
  Report Type: Spontaneous
  Country: SA (occurrence: SA)
  Receive Date: 20240222
  Receipt Date: 20240222
  Transmission Date: 20240409
  Serious: Yes (Hospitalization)
  Sender: FDA-Public Use
  Company Number: SA-ELI_LILLY_AND_COMPANY-SA202402008287

PATIENT
  Age: 29 Year
  Sex: Female

DRUGS (4)
  1. DULAGLUTIDE [Suspect]
     Active Substance: DULAGLUTIDE
     Indication: Weight decreased
     Dosage: UNK MG, 4 DOSES
  2. SEMAGLUTIDE [Suspect]
     Active Substance: SEMAGLUTIDE
     Indication: Weight decreased
     Dosage: 0.25 MG, WEEKLY (1/W)
  3. SEMAGLUTIDE [Suspect]
     Active Substance: SEMAGLUTIDE
     Dosage: 0.5 MG, WEEKLY (1/W)
  4. ACETAMINOPHEN\CAFFEINE\CODEINE PHOSPHATE [Suspect]
     Active Substance: ACETAMINOPHEN\CAFFEINE\CODEINE PHOSPHATE
     Indication: Headache
     Dosage: UNK, UNKNOWN
     Route: 065

REACTIONS (8)
  - Drug-induced liver injury [Unknown]
  - Autoimmune hepatitis [Unknown]
  - Cholelithiasis [Unknown]
  - Off label use [Unknown]
  - Rash [Unknown]
  - Iatrogenic injury [Unknown]
  - Epstein-Barr virus test positive [Unknown]
  - Cytomegalovirus test positive [Unknown]
